FAERS Safety Report 9841896 (Version 1)
Quarter: 2013Q4

REPORT INFORMATION
  Report Type: Spontaneous
  Country: US (occurrence: None)
  Receive Date: 20131219
  Receipt Date: 20131219
  Transmission Date: 20140711
  Serious: Yes (Other)
  Sender: FDA-Public Use
  Company Number: 163-20785-13050700

PATIENT
  Age: 73 Year
  Sex: Female

DRUGS (9)
  1. THALOMID (THALIDOMIDE) (100 MILLIGRAM, CAPSULES) [Suspect]
     Indication: AMYLOIDOSIS
     Route: 048
     Dates: start: 201005
  2. SYNTHROID (LEVOTHYROXINE SODIUM) [Concomitant]
  3. ACYCLOVIR (ACICLOVIR) (ACICLOVIR) [Concomitant]
  4. METOPROLOL (METOPROLOL) [Concomitant]
  5. FOLIC ACID (FOLIC ACID) [Concomitant]
  6. ASPIRIN (ACETYLSALICYLIC ACID) [Concomitant]
  7. AVAPRO (IREBESARTAN) [Concomitant]
  8. NORVASC (AMLODIPINE BESILATE) [Concomitant]
  9. PROCRIT (ERYTHROPOIETIN) [Concomitant]

REACTIONS (2)
  - Neuropathy peripheral [None]
  - Hypoaesthesia [None]
